FAERS Safety Report 10270705 (Version 2)
Quarter: 2014Q3

REPORT INFORMATION
  Report Type: Spontaneous
  Country: MY (occurrence: MY)
  Receive Date: 20140701
  Receipt Date: 20140707
  Transmission Date: 20150326
  Serious: Yes (Death, Other)
  Sender: FDA-Public Use
  Company Number: MY-PFIZER INC-2014178588

PATIENT
  Age: 68 Year
  Sex: Male

DRUGS (2)
  1. TOVIAZ [Suspect]
     Active Substance: FESOTERODINE FUMARATE
     Dosage: 4 MG, UNK
     Dates: start: 201404, end: 201405
  2. MULTIVITAMINS [Concomitant]
     Active Substance: VITAMINS

REACTIONS (6)
  - Dyspnoea [Unknown]
  - Vision blurred [Unknown]
  - Lung infection [Fatal]
  - Hearing impaired [Unknown]
  - Dry mouth [Unknown]
  - Cough [Unknown]
